FAERS Safety Report 13486705 (Version 1)
Quarter: 2017Q2

REPORT INFORMATION
  Report Type: Spontaneous
  Country: US (occurrence: US)
  Receive Date: 20170426
  Receipt Date: 20170426
  Transmission Date: 20170830
  Serious: No
  Sender: FDA-Public Use
  Company Number: US-TARO-2016TAR00697

PATIENT
  Age: 51 Year
  Sex: Female

DRUGS (1)
  1. ETODOLAC EXTENDED RELEASE TABLETS 500 M G [Suspect]
     Active Substance: ETODOLAC
     Indication: PAIN
     Dosage: 1 TABLETS, 2X/DAY
     Route: 048
     Dates: start: 201509

REACTIONS (1)
  - Medication residue present [Not Recovered/Not Resolved]
